FAERS Safety Report 17054579 (Version 2)
Quarter: 2019Q4

REPORT INFORMATION
  Report Type: Report from Study
  Country: US (occurrence: US)
  Receive Date: 20191120
  Receipt Date: 20191230
  Transmission Date: 20200122
  Serious: Yes (Hospitalization)
  Sender: FDA-Public Use
  Company Number: US-ARBOR PHARMACEUTICALS, LLC-US-2019ARB001573

PATIENT
  Age: 71 Year
  Sex: Female
  Weight: 122.6 kg

DRUGS (2)
  1. CARMUSTINE. [Suspect]
     Active Substance: CARMUSTINE
     Indication: GLIOBLASTOMA MULTIFORME
     Dosage: 8 WAFERS, 7.7 MG EACH, 61.6 MG TOTAL
     Dates: start: 20190403
  2. DEXAMETHASONE. [Suspect]
     Active Substance: DEXAMETHASONE
     Indication: PRODUCT USED FOR UNKNOWN INDICATION
     Dosage: 1-2 MG, QD
     Route: 048
     Dates: start: 20190407

REACTIONS (5)
  - Glioblastoma multiforme [Recovered/Resolved]
  - Failure to thrive [Recovered/Resolved]
  - Pulmonary embolism [Recovered/Resolved]
  - Brain abscess [Recovered/Resolved]
  - Pyrexia [Recovered/Resolved]

NARRATIVE: CASE EVENT DATE: 20190814
